FAERS Safety Report 12195793 (Version 1)
Quarter: 2016Q1

REPORT INFORMATION
  Report Type: Spontaneous
  Country: RU (occurrence: RU)
  Receive Date: 20160321
  Receipt Date: 20160321
  Transmission Date: 20160526
  Serious: Yes (Other)
  Sender: FDA-Public Use
  Company Number: RU-BAYER-2016-048074

PATIENT
  Age: 23 Year
  Sex: Female

DRUGS (2)
  1. YAZ PLUS [Suspect]
     Active Substance: DROSPIRENONE\ETHINYL ESTRADIOL
     Dosage: UNK
     Route: 048
  2. QLAIRA [Suspect]
     Active Substance: DIENOGEST\ESTRADIOL VALERATE
     Indication: OVARIAN CYST
     Dosage: UNK
     Route: 048
     Dates: start: 2016

REACTIONS (5)
  - Weight decreased [None]
  - Vulvovaginal dryness [None]
  - Off label use [None]
  - Vaginal laceration [None]
  - Metrorrhagia [None]

NARRATIVE: CASE EVENT DATE: 2016
